FAERS Safety Report 6755885-0 (Version None)
Quarter: 2010Q2

REPORT INFORMATION
  Report Type: 
  Country: None (occurrence: None)
  Receive Date: 20100604
  Receipt Date: 20100531
  Transmission Date: 20101027
  Serious: Yes (Life-Threatening)
  Sender: FDA-Public Use
  Company Number: JP-BRISTOL-MYERS SQUIBB COMPANY-15030968

PATIENT
  Age: 65 Year
  Sex: Male
  Weight: 54 kg

DRUGS (10)
  1. ERBITUX [Suspect]
     Indication: COLON CANCER
     Dosage: ON 14JAN2010-580MG;AND 20JAN-16FEB10:360MG(27 DAYS) RECENT INF-16FEB
     Route: 042
     Dates: start: 20091208, end: 20100216
  2. DUROTEP [Concomitant]
     Dosage: MT PATCH.
     Route: 003
     Dates: start: 20091224, end: 20100227
  3. SOLANAX [Concomitant]
     Route: 048
     Dates: start: 20091224, end: 20100227
  4. PARIET [Concomitant]
     Route: 048
  5. POLARAMINE [Concomitant]
     Indication: PREMEDICATION
     Route: 041
     Dates: start: 20091208, end: 20100216
  6. DECADRON [Concomitant]
     Indication: PREMEDICATION
     Route: 041
     Dates: start: 20091208, end: 20100216
  7. PARIET [Concomitant]
     Dosage: TABS
     Route: 048
     Dates: start: 20091228, end: 20100227
  8. DUROTEP [Concomitant]
     Dosage: DUROTEP MT PATCH; TRANS DERMALLY
     Route: 003
     Dates: start: 20091224, end: 20100320
  9. SOLANAX [Concomitant]
     Route: 048
     Dates: start: 20091224, end: 20100227
  10. OXYCONTIN [Concomitant]
     Dosage: INCREASED TO 10MG,20MG,40MG/DAY
     Route: 042

REACTIONS (2)
  - CEREBRAL INFARCTION [None]
  - INTERSTITIAL LUNG DISEASE [None]
